FAERS Safety Report 20349554 (Version 3)
Quarter: 2022Q2

REPORT INFORMATION
  Report Type: Report from Study
  Country: US (occurrence: None)
  Receive Date: 20220119
  Receipt Date: 20220511
  Transmission Date: 20220720
  Serious: Yes (Death, Hospitalization, Other)
  Sender: FDA-Public Use
  Company Number: US-ROCHE-2999028

PATIENT
  Age: 57 Year
  Sex: Female
  Weight: 64.4 kg

DRUGS (9)
  1. FLUOROURACIL [Suspect]
     Active Substance: FLUOROURACIL
     Indication: Colorectal adenocarcinoma
     Dosage: LAST ADMINISTERED DATE 29/OCT/2021
     Route: 042
     Dates: start: 20210514, end: 20211029
  2. FLUOROURACIL [Suspect]
     Active Substance: FLUOROURACIL
     Route: 042
  3. ATEZOLIZUMAB [Suspect]
     Active Substance: ATEZOLIZUMAB
     Indication: Colorectal adenocarcinoma
     Dosage: LAST DOSE ADMINISTERED 29/OCT/2021, O 28/MAY/2021, LAST DOSE ADMINISTERED
     Route: 041
     Dates: start: 20210514, end: 20211029
  4. BEVACIZUMAB [Suspect]
     Active Substance: BEVACIZUMAB
     Indication: Colorectal adenocarcinoma
     Route: 042
     Dates: start: 20210514, end: 20211029
  5. LEUCOVORIN CALCIUM [Suspect]
     Active Substance: LEUCOVORIN CALCIUM
     Indication: Colorectal cancer metastatic
     Dosage: LAST ADMINISTERED DATE 29/OCT/2021
     Route: 042
     Dates: start: 20210514, end: 20211029
  6. OXALIPLATIN [Suspect]
     Active Substance: OXALIPLATIN
     Indication: Colorectal cancer metastatic
     Dosage: LAST ADMINISTERED DATE 17/SEP/2021
     Route: 042
     Dates: start: 20210514, end: 20210917
  7. ATIVAN [Concomitant]
     Active Substance: LORAZEPAM
  8. BENADRYL [Concomitant]
     Active Substance: DIPHENHYDRAMINE HYDROCHLORIDE
  9. PEPCID [Concomitant]
     Active Substance: FAMOTIDINE

REACTIONS (3)
  - Small intestinal obstruction [Fatal]
  - Ileus paralytic [Fatal]
  - Infusion related reaction [Recovered/Resolved]

NARRATIVE: CASE EVENT DATE: 20210528
